FAERS Safety Report 8484998-0 (Version None)
Quarter: 2012Q3

REPORT INFORMATION
  Report Type: 
  Country: None (occurrence: None)
  Receive Date: 20120703
  Receipt Date: 20120627
  Transmission Date: 20120928
  Serious: Yes (Other)
  Sender: FDA-Public Use
  Company Number: US-AMGEN-USASP2012039854

PATIENT
  Age: 68 Year
  Sex: Female

DRUGS (3)
  1. PLAQUENIL [Concomitant]
     Dosage: 2 MG, UNK
     Dates: start: 19970101
  2. ENBREL [Suspect]
     Indication: RHEUMATOID ARTHRITIS
     Dosage: 50 MG, QWK
     Dates: start: 20111001
  3. TREXALL [Concomitant]
     Dosage: UNK
     Dates: start: 20090101

REACTIONS (2)
  - GASTRIC ULCER HAEMORRHAGE [None]
  - IMPAIRED HEALING [None]
